FAERS Safety Report 6534713-2 (Version None)
Quarter: 2010Q1

REPORT INFORMATION
  Report Type: 
  Country: None (occurrence: None)
  Receive Date: 20100112
  Receipt Date: 20100105
  Transmission Date: 20100710
  Serious: Yes (Hospitalization)
  Sender: FDA-Public Use
  Company Number: US-GILEAD-2010-0026316

PATIENT
  Sex: Female
  Weight: 71.8 kg

DRUGS (13)
  1. LETAIRIS [Suspect]
     Indication: PULMONARY ARTERIAL HYPERTENSION
     Route: 048
     Dates: start: 20090929
  2. FLUCONAZOLE [Concomitant]
  3. CELLCEPT [Concomitant]
  4. SINGULAIR [Concomitant]
  5. PHENERGAN HCL [Concomitant]
  6. XANAX [Concomitant]
  7. LOMOTIL [Concomitant]
  8. CELEBREX [Concomitant]
  9. ROPINIROLE [Concomitant]
  10. NEXIUM [Concomitant]
  11. PREDNISONE [Concomitant]
  12. HYDROCODONE BITARTRATE AND ACETAMINOPHEN [Concomitant]
  13. VITAMIN B1 TAB [Concomitant]

REACTIONS (4)
  - ENTERITIS INFECTIOUS [None]
  - NAUSEA [None]
  - PYREXIA [None]
  - VOMITING [None]
